FAERS Safety Report 4637114-7 (Version None)
Quarter: 2005Q2

REPORT INFORMATION
  Report Type: 
  Country: None (occurrence: None)
  Receive Date: 20050325
  Receipt Date: 20041214
  Transmission Date: 20051028
  Serious: No
  Sender: FDA-Public Use
  Company Number: USA041182816

PATIENT
  Age: 65 Year
  Sex: Female
  Weight: 62 kg

DRUGS (4)
  1. FORTEO [Suspect]
     Indication: OSTEOPOROSIS
     Dosage: 20 UG/1 DAY
     Dates: start: 20040401, end: 20041029
  2. EVISTA [Suspect]
  3. LEVOXYL [Concomitant]
  4. TRICOR [Concomitant]

REACTIONS (1)
  - EXOSTOSIS [None]
